FAERS Safety Report 16561544 (Version 2)
Quarter: 2019Q3

REPORT INFORMATION
  Report Type: Spontaneous
  Country: JP (occurrence: JP)
  Receive Date: 20190711
  Receipt Date: 20190912
  Transmission Date: 20191004
  Serious: Yes (Other)
  Sender: FDA-Public Use
  Company Number: JP-BAUSCH-BL-2019-019513

PATIENT
  Age: 69 Year
  Sex: Female

DRUGS (5)
  1. OTEZLA [Concomitant]
     Active Substance: APREMILAST
     Indication: PRODUCT USED FOR UNKNOWN INDICATION
     Dates: start: 20190426
  2. LUMICEF [Suspect]
     Active Substance: BRODALUMAB
     Dosage: SYRINGE
     Route: 058
     Dates: start: 20190626, end: 20190626
  3. LUMICEF [Suspect]
     Active Substance: BRODALUMAB
     Indication: PSORIASIS
     Dosage: SYRINGE
     Route: 058
     Dates: start: 20190612, end: 20190612
  4. LUMICEF [Suspect]
     Active Substance: BRODALUMAB
     Dosage: SYRINGE
     Route: 058
     Dates: start: 20190619, end: 20190619
  5. REBAMIPIDE [Concomitant]
     Active Substance: REBAMIPIDE
     Indication: PRODUCT USED FOR UNKNOWN INDICATION
     Dates: start: 20190717

REACTIONS (1)
  - Neutropenia [Recovered/Resolved]

NARRATIVE: CASE EVENT DATE: 20190703
